FAERS Safety Report 10412025 (Version 1)
Quarter: 2014Q3

REPORT INFORMATION
  Report Type: Spontaneous
  Country: US (occurrence: US)
  Receive Date: 20140827
  Receipt Date: 20140827
  Transmission Date: 20150326
  Serious: Yes (Other)
  Sender: FDA-Public Use
  Company Number: US-JNJFOC-20140821154

PATIENT
  Age: 6 Decade
  Sex: Male

DRUGS (1)
  1. NUCYNTA [Suspect]
     Active Substance: TAPENTADOL HYDROCHLORIDE
     Indication: ANALGESIC THERAPY
     Route: 048
     Dates: start: 2014, end: 2014

REACTIONS (2)
  - Irritable bowel syndrome [Unknown]
  - Haematochezia [Unknown]

NARRATIVE: CASE EVENT DATE: 2014
